FAERS Safety Report 5850483-5 (Version None)
Quarter: 2008Q3

REPORT INFORMATION
  Report Type: 
  Country: None (occurrence: None)
  Receive Date: 20080818
  Receipt Date: 20080804
  Transmission Date: 20090109
  Serious: Yes (Death, Life-Threatening)
  Sender: FDA-Public Use
  Company Number: WAES 0801USA05662

PATIENT
  Age: 64 Year
  Sex: Female
  Weight: 53.978 kg

DRUGS (15)
  1. TAB DECADRON (DEXAMETHASONE) 8 MG [Suspect]
     Indication: NON-SMALL CELL LUNG CANCER
     Dosage: 8 MG/BID/PO
     Route: 048
     Dates: start: 20070901, end: 20071107
  2. INJ DECADRON INJECTION 12 MG, 8 MG, 10 MG [Suspect]
     Indication: NON-SMALL CELL LUNG CANCER
     Dosage: 12 MG/DAILY/IV, 8 MG/Q12H/IV, 10 MG/DAILY/IV
     Route: 042
     Dates: start: 20070901, end: 20071107
  3. INJ DECADRON INJECTION 12 MG, 8 MG, 10 MG [Suspect]
     Indication: NON-SMALL CELL LUNG CANCER
     Dosage: 12 MG/DAILY/IV, 8 MG/Q12H/IV, 10 MG/DAILY/IV
     Route: 042
     Dates: start: 20071103, end: 20071107
  4. INJ DECADRON INJECTION 12 MG, 8 MG, 10 MG [Suspect]
     Indication: NON-SMALL CELL LUNG CANCER
     Dosage: 12 MG/DAILY/IV, 8 MG/Q12H/IV, 10 MG/DAILY/IV
     Route: 042
     Dates: start: 20071107, end: 20071107
  5. SU011248 L-MALATE SALT 37.5 MG [Suspect]
     Indication: NON-SMALL CELL LUNG CANCER
     Dosage: 37.5 MG/DAILY/PO, 3.75 MG/DAILY/PO
     Route: 048
     Dates: start: 20071018, end: 20071030
  6. SU011248 L-MALATE SALT 37.5 MG [Suspect]
     Indication: NON-SMALL CELL LUNG CANCER
     Dosage: 37.5 MG/DAILY/PO, 3.75 MG/DAILY/PO
     Route: 048
     Dates: start: 20071105, end: 20071117
  7. CYMBALTA [Concomitant]
  8. DIOVAN [Concomitant]
  9. KEPPRA [Concomitant]
  10. LIDODERM [Concomitant]
  11. MYCELEX [Concomitant]
  12. MYLANTA [Concomitant]
  13. PHENERGAN (PROMETHAZINE HYDROCHL [Concomitant]
  14. PREVACID [Concomitant]
  15. SENOKOT-S TABLETS [Concomitant]

REACTIONS (4)
  - DUODENAL PERFORATION [None]
  - INTESTINAL PERFORATION [None]
  - MALIGNANT NEOPLASM PROGRESSION [None]
  - OCCULT BLOOD POSITIVE [None]
